FAERS Safety Report 6940738-5 (Version None)
Quarter: 2010Q3

REPORT INFORMATION
  Report Type: 
  Country: None (occurrence: None)
  Receive Date: 20100817
  Receipt Date: 20100526
  Transmission Date: 20110219
  Serious: Yes (Other)
  Sender: FDA-Public Use
  Company Number: 20108431

PATIENT
  Sex: Male

DRUGS (1)
  1. LIORESAL [Suspect]
     Indication: MUSCLE SPASTICITY
     Dosage: 320 MCG, DAILY, INTRATHECAL
     Route: 037

REACTIONS (6)
  - HYPERTONIA [None]
  - HYPOTONIA [None]
  - INTRACRANIAL HYPOTENSION [None]
  - MUSCLE RIGIDITY [None]
  - SOMNOLENCE [None]
  - THERAPEUTIC RESPONSE UNEXPECTED [None]
